FAERS Safety Report 23530267 (Version 4)
Quarter: 2024Q1

REPORT INFORMATION
  Report Type: Report from Study
  Country: US (occurrence: US)
  Receive Date: 20240216
  Receipt Date: 20240304
  Transmission Date: 20240410
  Serious: Yes (Other)
  Sender: FDA-Public Use
  Company Number: US-UCBSA-2024007477

PATIENT
  Age: 7 Year
  Sex: Female

DRUGS (2)
  1. FINTEPLA [Suspect]
     Active Substance: FENFLURAMINE
     Indication: Lennox-Gastaut syndrome
     Dosage: 3.30 MILLILITER, 2X/DAY (BID)
     Dates: start: 20231207
  2. FINTEPLA [Suspect]
     Active Substance: FENFLURAMINE
     Dosage: 3.30 MILLILITER, 2X/DAY (BID)
     Dates: start: 2023

REACTIONS (6)
  - Seizure [Unknown]
  - Diarrhoea [Recovered/Resolved]
  - Hiccups [Not Recovered/Not Resolved]
  - Eating disorder [Unknown]
  - Gastrointestinal tube insertion [Recovered/Resolved]
  - Behaviour disorder [Not Recovered/Not Resolved]

NARRATIVE: CASE EVENT DATE: 20231201
